FAERS Safety Report 17210947 (Version 1)
Quarter: 2019Q4

REPORT INFORMATION
  Report Type: Report from Study
  Country: US (occurrence: US)
  Receive Date: 20191227
  Receipt Date: 20191227
  Transmission Date: 20200122
  Serious: Yes (Hospitalization)
  Sender: FDA-Public Use
  Company Number: US-ACTELION-A-NJ2019-194460

PATIENT
  Sex: Female
  Weight: 82.09 kg

DRUGS (3)
  1. UPTRAVI [Suspect]
     Active Substance: SELEXIPAG
     Indication: PULMONARY ARTERIAL HYPERTENSION
     Dosage: 1600 MCG, BID
     Route: 048
  2. ADEMPAS [Concomitant]
     Active Substance: RIOCIGUAT
  3. LETAIRIS [Concomitant]
     Active Substance: AMBRISENTAN

REACTIONS (8)
  - Oedema peripheral [Unknown]
  - Urinary tract infection [Unknown]
  - Renal failure [Unknown]
  - Decreased appetite [Unknown]
  - Cardiac failure congestive [Unknown]
  - Fluid retention [Unknown]
  - Feeling abnormal [Unknown]
  - Weight decreased [Unknown]
